FAERS Safety Report 16035773 (Version 2)
Quarter: 2019Q4

REPORT INFORMATION
  Report Type: Spontaneous
  Country: IN (occurrence: IN)
  Receive Date: 20190305
  Receipt Date: 20191004
  Transmission Date: 20200122
  Serious: Yes (Hospitalization, Other)
  Sender: FDA-Public Use
  Company Number: IN-PFIZER INC-2019095229

PATIENT
  Age: 53 Year
  Sex: Female
  Weight: 154 kg

DRUGS (1)
  1. PALBACE [Suspect]
     Active Substance: PALBOCICLIB
     Indication: BREAST CANCER METASTATIC
     Dosage: 100 MG, 1X/DAY
     Route: 048
     Dates: start: 20171006

REACTIONS (7)
  - Diabetes mellitus [Unknown]
  - Neutrophil count decreased [Recovering/Resolving]
  - Pyrexia [Recovered/Resolved]
  - Weight increased [Unknown]
  - Lower respiratory tract infection [Recovered/Resolved]
  - Dyspepsia [Unknown]
  - Febrile neutropenia [Recovered/Resolved]
